FAERS Safety Report 9614060 (Version 1)
Quarter: 2013Q4

REPORT INFORMATION
  Report Type: Spontaneous
  Country: NL (occurrence: NL)
  Receive Date: 20131011
  Receipt Date: 20131011
  Transmission Date: 20140711
  Serious: Yes (Death)
  Sender: FDA-Public Use
  Company Number: NL-AMGEN-NLDSP2013070408

PATIENT
  Age: 67 Year
  Sex: Male

DRUGS (2)
  1. ARANESP [Suspect]
     Indication: RENAL FAILURE CHRONIC
     Dosage: 80 UNK, Q2WK
     Route: 065
     Dates: start: 20120522
  2. ARANESP [Suspect]
     Indication: NEPHROGENIC ANAEMIA

REACTIONS (1)
  - Death [Fatal]
